FAERS Safety Report 14861386 (Version 1)
Quarter: 2018Q2

REPORT INFORMATION
  Report Type: Spontaneous
  Country: US (occurrence: US)
  Receive Date: 20180508
  Receipt Date: 20180508
  Transmission Date: 20180711
  Serious: Yes (Hospitalization)
  Sender: FDA-Public Use
  Company Number: US-JNJFOC-20180437071

PATIENT
  Sex: Male

DRUGS (6)
  1. LEVOTHYROXINE. [Concomitant]
     Active Substance: LEVOTHYROXINE
  2. WARFARIN [Concomitant]
     Active Substance: WARFARIN
  3. VITAMINE C [Concomitant]
     Active Substance: ASCORBIC ACID
  4. DARZALEX [Suspect]
     Active Substance: DARATUMUMAB
     Indication: PLASMA CELL MYELOMA
     Route: 042
     Dates: start: 2016
  5. ACYCLOVIR. [Concomitant]
     Active Substance: ACYCLOVIR
  6. VITAMIN B12 [Concomitant]
     Active Substance: CYANOCOBALAMIN

REACTIONS (2)
  - Blood cholesterol decreased [Unknown]
  - Cancer surgery [Unknown]
